FAERS Safety Report 9871362 (Version 1)
Quarter: 2014Q1

REPORT INFORMATION
  Report Type: Report from Study
  Country: LB (occurrence: LB)
  Receive Date: 20140205
  Receipt Date: 20140205
  Transmission Date: 20141002
  Serious: Yes (Hospitalization)
  Sender: FDA-Public Use
  Company Number: LB-SA-2014SA011806

PATIENT
  Age: 84 Year
  Sex: Female

DRUGS (7)
  1. LANTUS SOLOSTAR [Suspect]
     Indication: DIABETES MELLITUS
     Dosage: DOSE:10 UNIT(S)
     Route: 058
     Dates: start: 201401
  2. SOLOSTAR [Concomitant]
     Indication: DEVICE THERAPY
     Dates: start: 201401
  3. AMARYL [Concomitant]
     Indication: DIABETES MELLITUS
     Route: 048
  4. FLUDEX [Concomitant]
     Route: 048
  5. AMLOR [Concomitant]
     Route: 048
  6. CONCOR [Concomitant]
     Route: 048
  7. ACETYLSALICYLIC ACID [Concomitant]
     Route: 048

REACTIONS (2)
  - Anaemia [Unknown]
  - Fatigue [Unknown]
